FAERS Safety Report 22044274 (Version 1)
Quarter: 2023Q1

REPORT INFORMATION
  Report Type: Spontaneous
  Country: US (occurrence: None)
  Receive Date: 20230227
  Receipt Date: 20230227
  Transmission Date: 20230418
  Serious: Yes (Other)
  Sender: FDA-Public Use
  Company Number: None

PATIENT
  Sex: 0

DRUGS (1)
  1. AMPHETAMINE SULFATE\DEXTROAMPHETAMINE [Suspect]
     Active Substance: AMPHETAMINE SULFATE\DEXTROAMPHETAMINE
     Indication: Attention deficit hyperactivity disorder
     Dosage: OTHER QUANTITY : 1 TABLET(S);?

REACTIONS (5)
  - Drug ineffective [None]
  - Therapeutic product effect decreased [None]
  - Drug effect faster than expected [None]
  - Therapeutic product effect decreased [None]
  - Product quality issue [None]

NARRATIVE: CASE EVENT DATE: 20230227
